FAERS Safety Report 18258999 (Version 2)
Quarter: 2020Q4

REPORT INFORMATION
  Report Type: Report from Study
  Country: US (occurrence: US)
  Receive Date: 20200911
  Receipt Date: 20201130
  Transmission Date: 20210113
  Serious: Yes (Hospitalization)
  Sender: FDA-Public Use
  Company Number: NVSC2020US245127

PATIENT
  Age: 10 Year
  Sex: Female
  Weight: 44.2 kg

DRUGS (6)
  1. GSK1120212 [Suspect]
     Active Substance: TRAMETINIB
     Indication: MEDULLOBLASTOMA RECURRENT
     Dosage: UNK
     Route: 048
     Dates: start: 20200707
  2. KISQALI [Suspect]
     Active Substance: RIBOCICLIB
     Dosage: 350 MG DAILY
     Route: 048
     Dates: start: 20200715
  3. LASIX [Concomitant]
     Active Substance: FUROSEMIDE
     Indication: PRODUCT USED FOR UNKNOWN INDICATION
     Dosage: 10 MG*2
     Route: 065
     Dates: start: 20200901
  4. KISQALI [Suspect]
     Active Substance: RIBOCICLIB
     Indication: MEDULLOBLASTOMA RECURRENT
     Dosage: UNK
     Route: 048
     Dates: start: 20200707
  5. KISQALI [Suspect]
     Active Substance: RIBOCICLIB
     Dosage: 350 MG DAILY
     Route: 048
     Dates: start: 20200812, end: 20200831
  6. METOPROLOL. [Concomitant]
     Active Substance: METOPROLOL
     Indication: PRODUCT USED FOR UNKNOWN INDICATION
     Route: 065

REACTIONS (2)
  - Pericardial effusion [Recovered/Resolved]
  - Electrocardiogram QT prolonged [Recovered/Resolved]

NARRATIVE: CASE EVENT DATE: 20200831
